FAERS Safety Report 15701162 (Version 1)
Quarter: 2018Q4

REPORT INFORMATION
  Report Type: Other
  Country: US (occurrence: US)
  Receive Date: 20181207
  Receipt Date: 20181207
  Transmission Date: 20190205
  Serious: Yes (Hospitalization, Other)
  Sender: FDA-Public Use
  Company Number: US-INTELLIPHARMACEUTICS CORP.-2059841

PATIENT
  Age: 41 Year
  Sex: Female

DRUGS (10)
  1. OXYCODONE (OXYCODONE HYDROCHLORIDE) TABLET [Suspect]
     Active Substance: OXYCODONE HYDROCHLORIDE
     Route: 065
  2. ACETAMINOPHEN. [Concomitant]
     Active Substance: ACETAMINOPHEN
  3. LORAZEPAM. [Concomitant]
     Active Substance: LORAZEPAM
  4. QUETIAPINE FUMARATE. [Suspect]
     Active Substance: QUETIAPINE FUMARATE
     Indication: PYREXIA
     Route: 065
  5. KETOROLAC [Concomitant]
     Active Substance: KETOROLAC\KETOROLAC TROMETHAMINE
  6. FENTANYL CITRATE. [Suspect]
     Active Substance: FENTANYL CITRATE
     Route: 065
  7. PROPOFOL. [Suspect]
     Active Substance: PROPOFOL
     Route: 065
  8. MORPHINE (MORPHINE SULFATE) EXTENDED RELEASE TABLET [Suspect]
     Active Substance: MORPHINE SULFATE
     Route: 065
  9. MIXED AMPHETAMINE SALTS(DEXTROAMPHETAMINE SACCHARATE, AMPHETAMINE ASPA [Suspect]
     Active Substance: DEXTROAMPHETAMINE
     Route: 065
  10. HALOPERIDOL. [Concomitant]
     Active Substance: HALOPERIDOL

REACTIONS (4)
  - Withdrawal syndrome [None]
  - Substance abuse [None]
  - Drug ineffective for unapproved indication [Recovered/Resolved]
  - Acute respiratory distress syndrome [None]
